FAERS Safety Report 24543954 (Version 1)
Quarter: 2024Q4

REPORT INFORMATION
  Report Type: Spontaneous
  Country: GB (occurrence: GB)
  Receive Date: 20241024
  Receipt Date: 20241024
  Transmission Date: 20250115
  Serious: Yes (Other)
  Sender: ACCORD
  Company Number: None

PATIENT
  Age: 64 Year
  Sex: Male
  Weight: 67 kg

DRUGS (13)
  1. EZETIMIBE [Suspect]
     Active Substance: EZETIMIBE
     Indication: Product used for unknown indication
     Dosage: STRENGTH: 10MG
     Dates: start: 20241007
  2. FLUCLOXACILLIN [Concomitant]
     Active Substance: FLUCLOXACILLIN
     Dates: start: 20240925, end: 20241002
  3. DYMISTA [Concomitant]
     Active Substance: AZELASTINE HYDROCHLORIDE\FLUTICASONE PROPIONATE
     Dosage: TWO SPRAYS TO BE USED IN EACH NOSTRIL TWICE A D
     Dates: start: 20190211
  4. AMITRIPTYLINE HYDROCHLORIDE [Concomitant]
     Active Substance: AMITRIPTYLINE HYDROCHLORIDE
     Dosage: AT BEDTIME
     Dates: start: 20230315
  5. CLONAZEPAM [Concomitant]
     Active Substance: CLONAZEPAM
     Dosage: AT BED TIME AS DISCUSSED
     Dates: start: 20230315
  6. SILDENAFIL [Concomitant]
     Active Substance: SILDENAFIL
     Dosage: USE AS DIRECTED
     Dates: start: 20230315
  7. FOLIC ACID [Concomitant]
     Active Substance: FOLIC ACID
     Dates: start: 20230512
  8. UREA [Concomitant]
     Active Substance: UREA
     Dosage: WASH AND DRY FEET. APPLY A 1CM LENGTH OF DERMA
     Dates: start: 20230606
  9. OMEPRAZOLE [Concomitant]
     Active Substance: OMEPRAZOLE
     Dosage: DAILY IF REQUIRED
     Dates: start: 20230919
  10. LEVOTHYROXINE [Concomitant]
     Active Substance: LEVOTHYROXINE
     Dosage: EACH MORNING TO TREAT UNDERACTI
     Dates: start: 20240125
  11. BEMPEDOIC ACID [Concomitant]
     Active Substance: BEMPEDOIC ACID
     Dates: start: 20240313, end: 20241010
  12. CHOLECALCIFEROL [Concomitant]
     Active Substance: CHOLECALCIFEROL
     Dates: start: 20241010
  13. ROSUVASTATIN [Concomitant]
     Active Substance: ROSUVASTATIN
     Dosage: FOR ONE MONTH AND IF TOL
     Dates: start: 20241010

REACTIONS (1)
  - Muscle disorder [Unknown]

NARRATIVE: CASE EVENT DATE: 20241007
